FAERS Safety Report 4536447-2 (Version None)
Quarter: 2004Q4

REPORT INFORMATION
  Report Type: 
  Country: None (occurrence: None)
  Receive Date: 20041223
  Receipt Date: 20041212
  Transmission Date: 20050328
  Serious: Yes (Other)
  Sender: FDA-Public Use
  Company Number: US-JNJFOC-20041204438

PATIENT
  Age: 68 Year
  Sex: Female
  Weight: 68.04 kg

DRUGS (5)
  1. NATRECOR [Suspect]
     Dosage: INFUSION
     Route: 042
  2. NATRECOR [Suspect]
     Dosage: BOLUS
     Route: 042
  3. LASIX [Concomitant]
     Route: 042
  4. TOPROL-XL [Concomitant]
  5. DIOVAN [Concomitant]

REACTIONS (5)
  - AGGRESSION [None]
  - COMA [None]
  - CONFUSIONAL STATE [None]
  - HEADACHE [None]
  - MENTAL STATUS CHANGES [None]
